FAERS Safety Report 5114199-5 (Version None)
Quarter: 2006Q3

REPORT INFORMATION
  Report Type: 
  Country: None (occurrence: None)
  Receive Date: 20060925
  Receipt Date: 20060915
  Transmission Date: 20061208
  Serious: Yes (Other)
  Sender: FDA-Public Use
  Company Number: US-SANOFI-SYNTHELABO-A03200605746

PATIENT
  Sex: Female

DRUGS (4)
  1. WELLBUTRIN [Concomitant]
     Dosage: UNK
     Route: 048
  2. HYZAAR [Concomitant]
     Dosage: UNK
     Route: 048
  3. CLONIDINE [Concomitant]
     Dosage: UNK
     Route: 048
  4. AMBIEN [Suspect]
     Indication: INSOMNIA
     Route: 048
     Dates: start: 20060820, end: 20060830

REACTIONS (2)
  - FALL [None]
  - INJURY [None]
